FAERS Safety Report 15626095 (Version 1)
Quarter: 2018Q4

REPORT INFORMATION
  Report Type: Spontaneous
  Country: US (occurrence: US)
  Receive Date: 20181116
  Receipt Date: 20181116
  Transmission Date: 20190205
  Serious: No
  Sender: FDA-Public Use
  Company Number: US-MIST-TIR-2018-0709

PATIENT
  Age: 38 Year
  Sex: Female
  Weight: 68.1 kg

DRUGS (2)
  1. TIROSINT [Suspect]
     Active Substance: LEVOTHYROXINE SODIUM
     Indication: HYPOTHYROIDISM
     Dosage: 100MCG DAILY IN THE MORNING
     Route: 048
     Dates: start: 20171021, end: 20180710
  2. CYTOMEL [Concomitant]
     Active Substance: LIOTHYRONINE SODIUM
     Indication: PRODUCT USED FOR UNKNOWN INDICATION
     Dosage: 5MG TWICE PER DAY

REACTIONS (9)
  - Malaise [Recovered/Resolved]
  - Blood thyroid stimulating hormone decreased [Recovered/Resolved]
  - Feeling abnormal [Unknown]
  - Muscular weakness [Recovered/Resolved]
  - Drug level above therapeutic [Recovered/Resolved]
  - Thyroxine abnormal [Recovered/Resolved]
  - Dyspnoea [Recovered/Resolved]
  - Hyperthyroidism [Recovered/Resolved]
  - Blood test abnormal [Recovered/Resolved]

NARRATIVE: CASE EVENT DATE: 20171128
